FAERS Safety Report 19084861 (Version 3)
Quarter: 2021Q2

REPORT INFORMATION
  Report Type: Spontaneous
  Country: ES (occurrence: ES)
  Receive Date: 20210401
  Receipt Date: 20210622
  Transmission Date: 20210717
  Serious: Yes (Other)
  Sender: FDA-Public Use
  Company Number: ES-MYLANLABS-2021M1018016

PATIENT
  Age: 69 Year
  Sex: Male

DRUGS (3)
  1. SIMVASTATINA NORMON [Concomitant]
     Active Substance: SIMVASTATIN
     Indication: HYPERTENSION
     Dosage: UNK
  2. DIOVAN [Concomitant]
     Active Substance: VALSARTAN
     Indication: HYPERTENSION
     Dosage: UNK
  3. DUMIROX 50 MG COMPRIMIDOS RECUBIERTOS CON PEL?CULA. [Suspect]
     Active Substance: FLUVOXAMINE MALEATE
     Indication: ANXIETY
     Dosage: 1 DOSAGE FORM, QD
     Dates: start: 2020

REACTIONS (4)
  - Anorgasmia [Recovering/Resolving]
  - Off label use [Unknown]
  - Erectile dysfunction [Not Recovered/Not Resolved]
  - Insomnia [Recovering/Resolving]
